FAERS Safety Report 6802645-8 (Version None)
Quarter: 2010Q2

REPORT INFORMATION
  Report Type: 
  Country: None (occurrence: None)
  Receive Date: 20100628
  Receipt Date: 20100621
  Transmission Date: 20101027
  Serious: Yes (Death, Other)
  Sender: FDA-Public Use
  Company Number: PHHY2010US13859

PATIENT
  Age: 27 Year
  Sex: Female

DRUGS (5)
  1. TASIGNA [Suspect]
     Indication: ACUTE LYMPHOCYTIC LEUKAEMIA
     Dosage: 400 MG, BID
     Dates: start: 20060101
  2. SPRYCEL [Suspect]
     Dosage: 70 MG, BID
  3. DAUNORUBICIN HCL [Suspect]
  4. MELPHALAN HYDROCHLORIDE [Concomitant]
     Dosage: 70 MG/M^2 FOR 2 DAYS
  5. FLUDARABINE [Concomitant]
     Dosage: 25 MG/M^2 FOR 5 DAYS

REACTIONS (16)
  - ACUTE GRAFT VERSUS HOST DISEASE [None]
  - ACUTE GRAFT VERSUS HOST DISEASE IN INTESTINE [None]
  - ACUTE GRAFT VERSUS HOST DISEASE IN SKIN [None]
  - BLOOD CREATINE PHOSPHOKINASE MB INCREASED [None]
  - BRAIN NATRIURETIC PEPTIDE INCREASED [None]
  - CARDIAC FAILURE CONGESTIVE [None]
  - CARDIOMYOPATHY [None]
  - DYSPNOEA [None]
  - EJECTION FRACTION DECREASED [None]
  - ELECTROMECHANICAL DISSOCIATION [None]
  - LEUKAEMIC INFILTRATION BRAIN [None]
  - MALIGNANT NEOPLASM PROGRESSION [None]
  - MUCOSAL INFLAMMATION [None]
  - PLEURAL EFFUSION [None]
  - STEM CELL TRANSPLANT [None]
  - TROPONIN I INCREASED [None]
